FAERS Safety Report 23748468 (Version 1)
Quarter: 2024Q2

REPORT INFORMATION
  Report Type: Spontaneous
  Country: JP (occurrence: JP)
  Receive Date: 20240416
  Receipt Date: 20240416
  Transmission Date: 20240716
  Serious: Yes (Other)
  Sender: FDA-Public Use
  Company Number: JP-PFIZER INC-202400083651

PATIENT

DRUGS (1)
  1. VFEND [Suspect]
     Active Substance: VORICONAZOLE
     Indication: Systemic mycosis
     Dosage: UNK
     Route: 048

REACTIONS (5)
  - Graft versus host disease [Unknown]
  - Enterocolitis [Unknown]
  - Drug level decreased [Unknown]
  - Diarrhoea [Recovered/Resolved]
  - Feeding disorder [Recovering/Resolving]
